FAERS Safety Report 6997979-0 (Version None)
Quarter: 2010Q3

REPORT INFORMATION
  Report Type: 
  Country: None (occurrence: None)
  Receive Date: 20100920
  Receipt Date: 20070712
  Transmission Date: 20110219
  Serious: No
  Sender: FDA-Public Use
  Company Number: US-ASTRAZENECA-2007UW01722

PATIENT
  Age: 17101 Day
  Sex: Female
  Weight: 73.9 kg

DRUGS (41)
  1. SEROQUEL [Suspect]
     Indication: BIPOLAR DISORDER
     Route: 048
     Dates: start: 19970101, end: 20020101
  2. SEROQUEL [Suspect]
     Indication: SCHIZOPHRENIA
     Route: 048
     Dates: start: 19970101, end: 20020101
  3. SEROQUEL [Suspect]
     Indication: DEPRESSION
     Route: 048
     Dates: start: 19970101, end: 20020101
  4. SEROQUEL [Suspect]
     Indication: NERVOUSNESS
     Route: 048
     Dates: start: 19970101, end: 20020101
  5. SEROQUEL [Suspect]
     Indication: SLEEP DISORDER
     Route: 048
     Dates: start: 19970101, end: 20020101
  6. SEROQUEL [Suspect]
     Dosage: 50 MG - 300 MG
     Route: 048
     Dates: start: 20010502
  7. SEROQUEL [Suspect]
     Dosage: 50 MG - 300 MG
     Route: 048
     Dates: start: 20010502
  8. SEROQUEL [Suspect]
     Dosage: 50 MG - 300 MG
     Route: 048
     Dates: start: 20010502
  9. SEROQUEL [Suspect]
     Dosage: 50 MG - 300 MG
     Route: 048
     Dates: start: 20010502
  10. SEROQUEL [Suspect]
     Dosage: 50 MG - 300 MG
     Route: 048
     Dates: start: 20010502
  11. SEROQUEL [Suspect]
     Dosage: 50 MG, 200 MG
     Route: 048
     Dates: start: 20021009
  12. SEROQUEL [Suspect]
     Dosage: 50 MG, 200 MG
     Route: 048
     Dates: start: 20021009
  13. SEROQUEL [Suspect]
     Dosage: 50 MG, 200 MG
     Route: 048
     Dates: start: 20021009
  14. SEROQUEL [Suspect]
     Dosage: 50 MG, 200 MG
     Route: 048
     Dates: start: 20021009
  15. SEROQUEL [Suspect]
     Dosage: 50 MG, 200 MG
     Route: 048
     Dates: start: 20021009
  16. SEROQUEL [Suspect]
     Route: 048
     Dates: start: 20040601
  17. SEROQUEL [Suspect]
     Route: 048
     Dates: start: 20040601
  18. SEROQUEL [Suspect]
     Route: 048
     Dates: start: 20040601
  19. SEROQUEL [Suspect]
     Route: 048
     Dates: start: 20040601
  20. SEROQUEL [Suspect]
     Route: 048
     Dates: start: 20040601
  21. RISPERDAL [Concomitant]
     Dosage: 2 MG TO 3 MG
     Dates: start: 19990723, end: 20010327
  22. ABILIFY [Concomitant]
     Dates: start: 20051014, end: 20070307
  23. GEODON [Concomitant]
     Dates: start: 20050725, end: 20070507
  24. CELEXA [Concomitant]
     Dates: start: 20011119
  25. DEPAKOTE [Concomitant]
     Indication: MOOD SWINGS
     Dosage: 750 MG -1000 MG
     Dates: start: 20011119
  26. DEPAKOTE [Concomitant]
     Indication: DEPRESSION
     Dosage: 750 MG -1000 MG
     Dates: start: 20011119
  27. RESTORIL [Concomitant]
     Indication: SLEEP DISORDER
     Dates: start: 20011119
  28. ZYPREXA [Concomitant]
     Dates: start: 20001004, end: 20010119
  29. ZYPREXA [Concomitant]
     Dates: start: 20011119
  30. TRAZODONE HCL [Concomitant]
     Indication: SLEEP DISORDER
     Dosage: 50 MG -300 MG
     Dates: start: 20010502
  31. KLONOPIN [Concomitant]
     Dosage: 1.5 MG - 3 MG
     Dates: start: 20011119
  32. EFFEXOR [Concomitant]
     Dates: start: 20080219
  33. LITHIUM CARBONATE [Concomitant]
     Dates: start: 20080219
  34. WELLBUTRIN XL [Concomitant]
     Indication: DEPRESSION
     Dates: start: 20080219
  35. ACTOS [Concomitant]
     Route: 048
     Dates: start: 20090217
  36. AMBIEN CR [Concomitant]
     Route: 048
     Dates: start: 20090217
  37. INVEGA [Concomitant]
     Route: 048
     Dates: start: 20090217
  38. LEXAPRO [Concomitant]
     Route: 048
     Dates: start: 20090217
  39. ASPIRIN [Concomitant]
     Route: 048
     Dates: start: 20090330
  40. WELCHOL [Concomitant]
     Route: 048
  41. NEURONTIN [Concomitant]
     Dates: start: 20010502

REACTIONS (6)
  - BLOOD CHOLESTEROL INCREASED [None]
  - BLOOD TRIGLYCERIDES INCREASED [None]
  - MIXED HYPERLIPIDAEMIA [None]
  - TYPE 1 DIABETES MELLITUS [None]
  - TYPE 2 DIABETES MELLITUS [None]
  - WEIGHT INCREASED [None]
